FAERS Safety Report 25622657 (Version 4)
Quarter: 2025Q4

REPORT INFORMATION
  Report Type: Report from Study
  Country: US (occurrence: US)
  Receive Date: 20250730
  Receipt Date: 20251219
  Transmission Date: 20260117
  Serious: Yes (Other)
  Sender: OTSUKA
  Company Number: US-MMM-Otsuka-YAU46LES

PATIENT
  Sex: Male

DRUGS (11)
  1. TOLVAPTAN [Suspect]
     Active Substance: TOLVAPTAN
     Indication: Congenital cystic kidney disease
     Dosage: 45 MG, QD (EVERY MORNING)
     Route: 061
     Dates: start: 20250315
  2. TOLVAPTAN [Suspect]
     Active Substance: TOLVAPTAN
     Dosage: 15 MG, QD (8 H LATER EVERY DAY)
     Route: 061
     Dates: start: 20250315
  3. HYDROCHLOROT TAB 25MG [Concomitant]
     Indication: Product used for unknown indication
     Dosage: 25 MG
     Route: 065
  4. KETOROLAC TAB 10MG [Concomitant]
     Indication: Product used for unknown indication
     Dosage: 10 MG
     Route: 065
  5. ONDANSETRON [Concomitant]
     Active Substance: ONDANSETRON
     Indication: Product used for unknown indication
     Dosage: 8 MG
     Route: 065
  6. POTASSIUM POW CITRATE [Concomitant]
     Indication: Product used for unknown indication
     Dosage: UNK (POW)
     Route: 065
  7. PROMETHAZINE TAB 12.5MG [Concomitant]
     Indication: Product used for unknown indication
     Dosage: 12.5 MG
     Route: 065
  8. SERTRALINE TAB 50MG [Concomitant]
     Indication: Product used for unknown indication
     Dosage: 50 MG
     Route: 065
  9. TAMSULOSIN [Concomitant]
     Active Substance: TAMSULOSIN
     Indication: Product used for unknown indication
     Dosage: 0.4 MG
     Route: 065
  10. TRAMADOL HCL TAB 50MG [Concomitant]
     Indication: Product used for unknown indication
     Dosage: 50 MG
     Route: 065
  11. TYLENOL TAB 500MG [Concomitant]
     Indication: Product used for unknown indication
     Dosage: 500 MG
     Route: 065

REACTIONS (17)
  - Syncope [Not Recovered/Not Resolved]
  - Confusional state [Unknown]
  - Sleep disorder [Unknown]
  - Vomiting [Unknown]
  - Nausea [Unknown]
  - Asthenia [Unknown]
  - Dry mouth [Unknown]
  - Fatigue [Unknown]
  - Headache [Unknown]
  - Thirst [Recovered/Resolved]
  - Thirst [Not Recovered/Not Resolved]
  - Polyuria [Recovered/Resolved]
  - Polyuria [Unknown]
  - Diarrhoea [Unknown]
  - Dizziness [Not Recovered/Not Resolved]
  - Pollakiuria [Not Recovered/Not Resolved]
  - Product dose omission issue [Recovered/Resolved]
